FAERS Safety Report 11126991 (Version 18)
Quarter: 2017Q2

REPORT INFORMATION
  Report Type: Report from Study
  Country: CA (occurrence: CA)
  Receive Date: 20150521
  Receipt Date: 20170628
  Transmission Date: 20170829
  Serious: Yes (Other)
  Sender: FDA-Public Use
  Company Number: CA-ROCHE-1580093

PATIENT
  Age: 59 Year
  Sex: Male

DRUGS (8)
  1. AVASTIN [Suspect]
     Active Substance: BEVACIZUMAB
     Route: 042
     Dates: start: 20151208, end: 20151221
  2. PANTOLOC [Concomitant]
     Active Substance: PANTOPRAZOLE SODIUM
  3. KEPPRA [Concomitant]
     Active Substance: LEVETIRACETAM
  4. CELEXA [Concomitant]
     Active Substance: CITALOPRAM HYDROBROMIDE
  5. DECADRON [Concomitant]
     Active Substance: DEXAMETHASONE
  6. AVASTIN [Suspect]
     Active Substance: BEVACIZUMAB
     Indication: GLIOBLASTOMA
     Route: 042
     Dates: start: 20150506
  7. AVASTIN [Suspect]
     Active Substance: BEVACIZUMAB
     Route: 042
     Dates: start: 20160818
  8. TEGRETOL [Concomitant]
     Active Substance: CARBAMAZEPINE

REACTIONS (20)
  - Headache [Not Recovered/Not Resolved]
  - Brain oedema [Not Recovered/Not Resolved]
  - Noninfective encephalitis [Unknown]
  - White blood cell count decreased [Not Recovered/Not Resolved]
  - Nausea [Unknown]
  - Vomiting [Unknown]
  - Fatigue [Not Recovered/Not Resolved]
  - Mean cell haemoglobin concentration decreased [Unknown]
  - Neutrophil count increased [Unknown]
  - Haemoglobin decreased [Unknown]
  - Gait disturbance [Not Recovered/Not Resolved]
  - Lymphocyte count decreased [Not Recovered/Not Resolved]
  - Alanine aminotransferase increased [Not Recovered/Not Resolved]
  - Blood pressure increased [Unknown]
  - Monocyte count increased [Not Recovered/Not Resolved]
  - Mean cell haemoglobin decreased [Not Recovered/Not Resolved]
  - Epilepsy [Unknown]
  - Platelet count decreased [Unknown]
  - Fatigue [Unknown]
  - Neutrophil count decreased [Unknown]

NARRATIVE: CASE EVENT DATE: 201512
